FAERS Safety Report 25959212 (Version 1)
Quarter: 2025Q4

REPORT INFORMATION
  Report Type: Report from Study
  Country: US (occurrence: US)
  Receive Date: 20251025
  Receipt Date: 20251025
  Transmission Date: 20260117
  Serious: Yes (Other)
  Sender: TAKEDA
  Company Number: US-TAKEDA-2025TUS021090

PATIENT
  Age: 64 Year
  Sex: Male

DRUGS (1)
  1. VEDOLIZUMAB [Suspect]
     Active Substance: VEDOLIZUMAB
     Indication: Colitis ulcerative
     Dosage: 300 MILLIGRAM

REACTIONS (18)
  - Erectile dysfunction [Unknown]
  - Portal vein thrombosis [Unknown]
  - Cardiac valve vegetation [Unknown]
  - Type 2 diabetes mellitus [Unknown]
  - Nephrolithiasis [Unknown]
  - Hypertension [Unknown]
  - Product dose omission issue [Unknown]
  - Obesity [Unknown]
  - Impaired fasting glucose [Unknown]
  - Type V hyperlipidaemia [Unknown]
  - Gout [Unknown]
  - Arthritis [Unknown]
  - Abdominal lymphadenopathy [Unknown]
  - Sciatica [Unknown]
  - Vertigo positional [Unknown]
  - Cardiac murmur [Unknown]
  - Haemorrhoids [Unknown]
  - Pyrexia [Unknown]
